FAERS Safety Report 8558866-X (Version None)
Quarter: 2012Q3

REPORT INFORMATION
  Report Type: 
  Country: None (occurrence: None)
  Receive Date: 20120801
  Receipt Date: 20120730
  Transmission Date: 20120928
  Serious: Yes (Other)
  Sender: FDA-Public Use
  Company Number: PHHY2012ZA066127

PATIENT
  Sex: Female

DRUGS (1)
  1. ZOLEDRONOC ACID [Suspect]
     Dosage: 5 MG PER 100 ML YEARLY
     Route: 042
     Dates: start: 20120711

REACTIONS (8)
  - CYSTITIS [None]
  - SYNCOPE [None]
  - HYPERHIDROSIS [None]
  - EATING DISORDER [None]
  - SPINAL PAIN [None]
  - ERYTHEMA [None]
  - NAUSEA [None]
  - REFLUX GASTRITIS [None]
